FAERS Safety Report 6324472-0 (Version None)
Quarter: 2009Q3

REPORT INFORMATION
  Report Type: 
  Country: None (occurrence: None)
  Receive Date: 20090824
  Receipt Date: 20090813
  Transmission Date: 20100115
  Serious: Yes (Life-Threatening)
  Sender: FDA-Public Use
  Company Number: US-JNJFOC-20090704078

PATIENT
  Age: 71 Year
  Sex: Male

DRUGS (3)
  1. REMICADE [Suspect]
     Indication: ERYTHRODERMIC PSORIASIS
     Route: 042
  2. REMICADE [Suspect]
     Indication: PSORIASIS
     Route: 042
  3. REMICADE [Suspect]
     Indication: PSORIATIC ARTHROPATHY
     Dosage: DOSES VARIED FROM 300 MG TO 500 MG
     Route: 042

REACTIONS (3)
  - NEPHROLITHIASIS [None]
  - PERIPHERAL T-CELL LYMPHOMA UNSPECIFIED [None]
  - SQUAMOUS CELL CARCINOMA [None]
